FAERS Safety Report 23661648 (Version 5)
Quarter: 2025Q1

REPORT INFORMATION
  Report Type: Report from Study
  Country: GB (occurrence: GB)
  Receive Date: 20240322
  Receipt Date: 20250113
  Transmission Date: 20250409
  Serious: No
  Sender: SANDOZ
  Company Number: GB-SANDOZ-SDZ2024GB031093

PATIENT
  Sex: Female

DRUGS (3)
  1. HYRIMOZ [Suspect]
     Active Substance: ADALIMUMAB-ADAZ
     Route: 065
  2. HYRIMOZ [Suspect]
     Active Substance: ADALIMUMAB-ADAZ
     Indication: Crohn^s disease
     Dosage: 40 MG, Q2W 40 MG/0.8 ML
     Route: 058
  3. HYRIMOZ [Suspect]
     Active Substance: ADALIMUMAB-ADAZ
     Dosage: 40 MG, Q2W 40MG/0.4ML
     Route: 058

REACTIONS (2)
  - Malaise [Unknown]
  - Injection site pain [Recovered/Resolved]
